FAERS Safety Report 9829259 (Version 1)
Quarter: 2014Q1

REPORT INFORMATION
  Report Type: Report from Study
  Country: CN (occurrence: CN)
  Receive Date: 20140120
  Receipt Date: 20140120
  Transmission Date: 20141002
  Serious: Yes (Hospitalization)
  Sender: FDA-Public Use
  Company Number: CN-ROCHE-1331900

PATIENT
  Sex: 0

DRUGS (3)
  1. CEFTRIAXONE [Suspect]
     Indication: RESPIRATORY TRACT INFECTION
     Dosage: 100-150 MG/KG/DAY MOSTLY DILUTED IN 100 ML NORMAL SALINE OR 5% GLUCOSE SOLUTION, FOLLOWED BY DRIP OV
     Route: 042
  2. CEFTRIAXONE [Suspect]
     Indication: GASTROENTERITIS
  3. CEFTRIAXONE [Suspect]
     Indication: INFECTION

REACTIONS (2)
  - Renal failure acute [Recovered/Resolved]
  - Calculus urinary [Recovered/Resolved]
